FAERS Safety Report 4455691-6 (Version None)
Quarter: 2004Q3

REPORT INFORMATION
  Report Type: 
  Country: None (occurrence: None)
  Receive Date: 20040917
  Receipt Date: 20040908
  Transmission Date: 20050211
  Serious: Yes (Other)
  Sender: FDA-Public Use
  Company Number: 2004232665FR

PATIENT
  Age: 76 Year
  Sex: Female

DRUGS (3)
  1. XALATAN [Suspect]
     Indication: GLAUCOMA
     Dosage: 1 DROP PER EYE EVERY DAY, OPHTHALMIC
     Route: 047
     Dates: start: 20020101
  2. EYE VITAMIN [Concomitant]
  3. MINERAL SUPPLEMENTS [Concomitant]

REACTIONS (3)
  - CATARACT [None]
  - CONDITION AGGRAVATED [None]
  - SKIN HYPERPIGMENTATION [None]
